FAERS Safety Report 14654269 (Version 1)
Quarter: 2018Q1

REPORT INFORMATION
  Report Type: Spontaneous
  Country: US (occurrence: US)
  Receive Date: 20180319
  Receipt Date: 20180319
  Transmission Date: 20180509
  Serious: No
  Sender: FDA-Public Use
  Company Number: US-ASTRAZENECA-2018SE30244

PATIENT
  Sex: Male
  Weight: 133.4 kg

DRUGS (3)
  1. METFORMIN [Concomitant]
     Active Substance: METFORMIN HYDROCHLORIDE
     Indication: TYPE 2 DIABETES MELLITUS
     Route: 048
  2. GLIMEPIRIDE. [Concomitant]
     Active Substance: GLIMEPIRIDE
     Indication: TYPE 2 DIABETES MELLITUS
     Dosage: DAILY
     Route: 048
  3. BYDUREON [Suspect]
     Active Substance: EXENATIDE
     Indication: TYPE 2 DIABETES MELLITUS
     Route: 058
     Dates: start: 2017

REACTIONS (9)
  - Injection site mass [Recovered/Resolved]
  - Glycosylated haemoglobin decreased [Recovered/Resolved]
  - Injection site haemorrhage [Recovered/Resolved]
  - Malaise [Not Recovered/Not Resolved]
  - Injection site swelling [Recovered/Resolved]
  - Injection site bruising [Not Recovered/Not Resolved]
  - Product use issue [Unknown]
  - Injection site scar [Recovered/Resolved]
  - Injection site pain [Recovered/Resolved]
